FAERS Safety Report 16859504 (Version 1)
Quarter: 2019Q3

REPORT INFORMATION
  Report Type: Report from Study
  Country: None (occurrence: US)
  Receive Date: 20190927
  Receipt Date: 20190927
  Transmission Date: 20191005
  Serious: Yes (Hospitalization, Other)
  Sender: FDA-Public Use
  Company Number: US-ABBVIE-18K-163-2603854-00

PATIENT
  Age: 54 Year
  Sex: Male

DRUGS (2)
  1. HUMIRA [Suspect]
     Active Substance: ADALIMUMAB
     Indication: ANKYLOSING SPONDYLITIS
     Route: 058
     Dates: start: 20181214, end: 2019
  2. HUMIRA [Suspect]
     Active Substance: ADALIMUMAB
     Indication: RHEUMATOID ARTHRITIS
     Route: 058
     Dates: start: 2019, end: 20190818

REACTIONS (19)
  - Musculoskeletal stiffness [Recovered/Resolved]
  - Musculoskeletal stiffness [Recovering/Resolving]
  - Tenderness [Recovering/Resolving]
  - Spinal deformity [Unknown]
  - Neck pain [Recovering/Resolving]
  - General physical condition abnormal [Recovering/Resolving]
  - Loss of personal independence in daily activities [Recovering/Resolving]
  - Neck pain [Recovered/Resolved]
  - Arthralgia [Recovering/Resolving]
  - Fatigue [Recovered/Resolved]
  - Mobility decreased [Recovering/Resolving]
  - Back pain [Recovered/Resolved]
  - Dysstasia [Recovering/Resolving]
  - Joint range of motion decreased [Recovering/Resolving]
  - Musculoskeletal pain [Not Recovered/Not Resolved]
  - Abdominal pain [Unknown]
  - Ligament rupture [Unknown]
  - Fatigue [Recovering/Resolving]
  - Joint swelling [Recovered/Resolved]

NARRATIVE: CASE EVENT DATE: 2018
